FAERS Safety Report 6356717-5 (Version None)
Quarter: 2009Q3

REPORT INFORMATION
  Report Type: 
  Country: None (occurrence: None)
  Receive Date: 20090915
  Receipt Date: 20090910
  Transmission Date: 20100115
  Serious: Yes (Other)
  Sender: FDA-Public Use
  Company Number: US-MERCK-0906USA04758

PATIENT
  Age: 39 Month
  Sex: Male
  Weight: 18 kg

DRUGS (3)
  1. SINGULAIR [Suspect]
     Indication: BRONCHITIS
     Route: 048
     Dates: start: 20090512, end: 20090512
  2. SINGULAIR [Suspect]
     Indication: RHINITIS ALLERGIC
     Route: 048
     Dates: start: 20090512, end: 20090512
  3. ALDEX (GUAIFENESIN (+) PHENYLEPHRINE HYDROCHLORIDE) [Suspect]
     Route: 065

REACTIONS (2)
  - CONVULSION [None]
  - DYSPNOEA [None]
